FAERS Safety Report 9465781 (Version 1)
Quarter: 2013Q3

REPORT INFORMATION
  Report Type: Spontaneous
  Country: GB (occurrence: GB)
  Receive Date: 20130820
  Receipt Date: 20130820
  Transmission Date: 20140515
  Serious: Yes (Other)
  Sender: FDA-Public Use
  Company Number: GB-PFIZER INC-2013237743

PATIENT
  Sex: Male

DRUGS (1)
  1. IBUPROFEN [Suspect]
     Dosage: UNK

REACTIONS (5)
  - Bedridden [Unknown]
  - Drug ineffective [Unknown]
  - General physical condition abnormal [Unknown]
  - Malaise [Unknown]
  - Asthenia [Unknown]
